FAERS Safety Report 7756523-0 (Version None)
Quarter: 2011Q3

REPORT INFORMATION
  Report Type: 
  Country: None (occurrence: None)
  Receive Date: 20110916
  Receipt Date: 20110906
  Transmission Date: 20111222
  Serious: Yes (Death, Hospitalization)
  Sender: FDA-Public Use
  Company Number: US-ELI_LILLY_AND_COMPANY-US201101000574

PATIENT
  Sex: Female
  Weight: 40.816 kg

DRUGS (1)
  1. FORTEO [Suspect]
     Indication: OSTEOPOROSIS
     Dosage: 20 UG, DAILY (1/D)
     Route: 058
     Dates: start: 20101001

REACTIONS (9)
  - WEIGHT DECREASED [None]
  - PAIN [None]
  - HEART RATE DECREASED [None]
  - DEATH [None]
  - DIARRHOEA [None]
  - ASTHENIA [None]
  - TINNITUS [None]
  - PNEUMONIA [None]
  - PRESYNCOPE [None]
